FAERS Safety Report 16567633 (Version 1)
Quarter: 2019Q3

REPORT INFORMATION
  Report Type: Spontaneous
  Country: JP (occurrence: JP)
  Receive Date: 20190712
  Receipt Date: 20190712
  Transmission Date: 20191004
  Serious: Yes (Other)
  Sender: FDA-Public Use
  Company Number: JP-ASTRAZENECA-2019SE83740

PATIENT
  Age: 31 Year
  Sex: Male
  Weight: 51 kg

DRUGS (8)
  1. OLANZAPINE. [Suspect]
     Active Substance: OLANZAPINE
     Indication: INSOMNIA
     Dosage: 2.5MG UNKNOWN
     Route: 048
  2. NITRAZEPAM [Concomitant]
     Active Substance: NITRAZEPAM
     Route: 048
     Dates: start: 201805
  3. LUNESTA [Concomitant]
     Active Substance: ESZOPICLONE
     Route: 048
     Dates: start: 201805
  4. EURODIN [Concomitant]
  5. SEROQUEL [Suspect]
     Active Substance: QUETIAPINE FUMARATE
     Indication: INSOMNIA
     Route: 048
     Dates: start: 201809
  6. OLANZAPINE. [Suspect]
     Active Substance: OLANZAPINE
     Indication: INSOMNIA
     Route: 048
     Dates: start: 20180921
  7. CONTOMIN [Concomitant]
     Active Substance: CHLORPROMAZINE
     Route: 048
     Dates: start: 20190711
  8. CONTOMIN [Concomitant]
     Active Substance: CHLORPROMAZINE
     Route: 048
     Dates: start: 201805, end: 20180921

REACTIONS (4)
  - Off label use [Unknown]
  - Hypoaesthesia [Not Recovered/Not Resolved]
  - Hallucination, auditory [Not Recovered/Not Resolved]
  - Tinnitus [Not Recovered/Not Resolved]

NARRATIVE: CASE EVENT DATE: 201809
